FAERS Safety Report 22698128 (Version 3)
Quarter: 2023Q4

REPORT INFORMATION
  Report Type: Spontaneous
  Country: US (occurrence: US)
  Receive Date: 20230712
  Receipt Date: 20231128
  Transmission Date: 20240109
  Serious: Yes (Other)
  Sender: FDA-Public Use
  Company Number: US-PFIZER INC-202101111895

PATIENT
  Age: 72 Year
  Sex: Female
  Weight: 86.9 kg

DRUGS (3)
  1. IBRANCE [Suspect]
     Active Substance: PALBOCICLIB
     Indication: Invasive ductal breast carcinoma
     Dosage: UNK
     Route: 048
     Dates: start: 202108
  2. IBRANCE [Suspect]
     Active Substance: PALBOCICLIB
     Indication: Breast cancer metastatic
     Dosage: 125 MG, DAILY (1 TAB ORALLY DAILY WITH FOOD X 21 DAYS EVERY 28 DAY CYCLE)
     Route: 048
     Dates: start: 20220207
  3. LETROZOLE [Concomitant]
     Active Substance: LETROZOLE
     Dosage: UNK
     Dates: start: 202108

REACTIONS (15)
  - Thrombocytopenia [Unknown]
  - Product dose omission issue [Unknown]
  - Anaemia macrocytic [Unknown]
  - White blood cell count decreased [Unknown]
  - Red blood cell count decreased [Unknown]
  - Haemoglobin decreased [Unknown]
  - Haematocrit decreased [Unknown]
  - Mean cell haemoglobin decreased [Unknown]
  - Mean cell volume increased [Unknown]
  - Platelet count decreased [Recovered/Resolved]
  - Neutrophil count decreased [Unknown]
  - Immature granulocyte count increased [Unknown]
  - Reticulocyte count increased [Unknown]
  - Reticulocyte count increased [Unknown]
  - Anaemia [Not Recovered/Not Resolved]
